FAERS Safety Report 21228416 (Version 1)
Quarter: 2022Q3

REPORT INFORMATION
  Report Type: Spontaneous
  Country: ES (occurrence: ES)
  Receive Date: 20220818
  Receipt Date: 20220818
  Transmission Date: 20221027
  Serious: Yes (Other)
  Sender: FDA-Public Use
  Company Number: ES-EMA-DD-20220725-216281-132502

PATIENT
  Age: 25 Year
  Sex: Female

DRUGS (9)
  1. PREGABALIN [Suspect]
     Active Substance: PREGABALIN
     Indication: Neuralgia
     Dosage: 75 MILLIGRAM, BID
     Route: 048
     Dates: start: 2020
  2. PREGABALIN [Suspect]
     Active Substance: PREGABALIN
     Indication: Vulvovaginal pain
  3. AMITRIPTYLINE [Suspect]
     Active Substance: AMITRIPTYLINE
     Indication: Neuralgia
     Dosage: 10 MILLIGRAM, QD,1 TABLET (10 MG) AT NIGHT, WITH INSTRUCTIONS TO DOUBLE THE DOSE EVERY 15 DAYS IN
     Route: 048
     Dates: start: 2020
  4. AMITRIPTYLINE [Suspect]
     Active Substance: AMITRIPTYLINE
     Indication: Vulvovaginal pain
  5. ALPHA LIPOIC ACID [Concomitant]
     Active Substance: .ALPHA.-LIPOIC ACID
     Indication: Neuralgia
     Dosage: 2 DOSAGE FORM, QD, 800 MG
     Route: 065
  6. ALPHA LIPOIC ACID [Concomitant]
     Active Substance: .ALPHA.-LIPOIC ACID
     Indication: Vulvovaginal pain
  7. ALPHA LIPOIC ACID [Concomitant]
     Active Substance: .ALPHA.-LIPOIC ACID
     Indication: Nutritional supplementation
  8. MYRRH TINCTURE [Concomitant]
     Indication: Supplementation therapy
     Dosage: 2 DOSAGE FORM/PER DAY
     Route: 065
  9. PALMIDROL [Concomitant]
     Active Substance: PALMIDROL
     Indication: Supplementation therapy
     Dosage: 600 MG
     Route: 065

REACTIONS (3)
  - Confusional state [Unknown]
  - Dizziness [Unknown]
  - Drug intolerance [Unknown]

NARRATIVE: CASE EVENT DATE: 20200101
